FAERS Safety Report 9736519 (Version 1)
Quarter: 2013Q4

REPORT INFORMATION
  Report Type: Spontaneous
  Country: US (occurrence: US)
  Receive Date: 20131206
  Receipt Date: 20131206
  Transmission Date: 20140711
  Serious: No
  Sender: FDA-Public Use
  Company Number: US-BIOGENIDEC-2013BI092752

PATIENT
  Sex: Male

DRUGS (9)
  1. TECFIDERA [Suspect]
     Indication: MULTIPLE SCLEROSIS
     Route: 048
     Dates: start: 20130829
  2. TECFIDERA [Suspect]
     Indication: MULTIPLE SCLEROSIS
     Route: 048
     Dates: start: 20130905
  3. FUROSEMIDE [Concomitant]
  4. IBUPROFEN [Concomitant]
  5. PAXIL [Concomitant]
  6. CYTOTEC [Concomitant]
  7. SINGULAIR [Concomitant]
  8. FOLADIL [Concomitant]
  9. LOTENSIN [Concomitant]

REACTIONS (3)
  - Dizziness [Not Recovered/Not Resolved]
  - Syncope [Not Recovered/Not Resolved]
  - Movement disorder [Not Recovered/Not Resolved]
